FAERS Safety Report 23431920 (Version 4)
Quarter: 2024Q2

REPORT INFORMATION
  Report Type: Spontaneous
  Country: US (occurrence: US)
  Receive Date: 20240123
  Receipt Date: 20240412
  Transmission Date: 20240716
  Serious: Yes (Disabling, Other)
  Sender: FDA-Public Use
  Company Number: US-REGENERON PHARMACEUTICALS, INC.-2023-148258

PATIENT
  Sex: Male

DRUGS (4)
  1. EYLEA [Suspect]
     Active Substance: AFLIBERCEPT
     Indication: Neovascular age-related macular degeneration
     Dosage: 2 MG, FORMULATION: UNKNOWN
     Dates: start: 2018, end: 202309
  2. LATANOPROST [Concomitant]
     Active Substance: LATANOPROST
     Indication: Product used for unknown indication
  3. FRESH EYES [CARMELLOSE SODIUM] [Concomitant]
     Indication: Product used for unknown indication
  4. VITAMINS NOS [Concomitant]
     Active Substance: VITAMINS
     Indication: Product used for unknown indication

REACTIONS (6)
  - Macular degeneration [Unknown]
  - Blindness unilateral [Unknown]
  - Neovascular age-related macular degeneration [Unknown]
  - Disease progression [Unknown]
  - Visual impairment [Unknown]
  - Drug ineffective [Unknown]
